FAERS Safety Report 18059502 (Version 9)
Quarter: 2021Q3

REPORT INFORMATION
  Report Type: Spontaneous
  Country: US (occurrence: US)
  Receive Date: 20200723
  Receipt Date: 20210706
  Transmission Date: 20211014
  Serious: Yes (Hospitalization)
  Sender: FDA-Public Use
  Company Number: US-PFIZER INC-2020280634

PATIENT
  Age: 89 Year
  Sex: Female

DRUGS (2)
  1. LEFLUNOMIDE. [Concomitant]
     Active Substance: LEFLUNOMIDE
     Dosage: UNK
  2. XELJANZ XR [Suspect]
     Active Substance: TOFACITINIB CITRATE
     Indication: RHEUMATOID ARTHRITIS
     Dosage: 11 MG, 1X/DAY
     Route: 048
     Dates: start: 202006

REACTIONS (13)
  - Musculoskeletal stiffness [Unknown]
  - Product dose omission issue [Unknown]
  - Nausea [Not Recovered/Not Resolved]
  - Sciatica [Unknown]
  - Musculoskeletal discomfort [Not Recovered/Not Resolved]
  - Limb discomfort [Unknown]
  - Condition aggravated [Unknown]
  - Sleep disorder [Unknown]
  - Myalgia [Unknown]
  - Foot deformity [Unknown]
  - Abdominal discomfort [Not Recovered/Not Resolved]
  - Hand deformity [Unknown]
  - Herpes zoster [Not Recovered/Not Resolved]

NARRATIVE: CASE EVENT DATE: 2020
